FAERS Safety Report 4322317-1 (Version None)
Quarter: 2004Q1

REPORT INFORMATION
  Report Type: 
  Country: None (occurrence: None)
  Receive Date: 20040323
  Receipt Date: 20040323
  Transmission Date: 20041129
  Serious: Yes (Other)
  Sender: FDA-Public Use
  Company Number: None

PATIENT
  Sex: Male
  Weight: 70 kg

DRUGS (6)
  1. GAMMAR-P I.V. [Suspect]
     Indication: MYASTHENIA GRAVIS
     Dosage: 35 GRAMS ONCE DAILY IV
     Route: 042
     Dates: start: 20040316, end: 20040317
  2. GAMMAR-P I.V. [Suspect]
  3. NEURONTIN [Concomitant]
  4. LORAZEPAM [Concomitant]
  5. EFFEXOR [Concomitant]
  6. HYDROCODONE/APAP [Concomitant]

REACTIONS (3)
  - HEADACHE [None]
  - NAUSEA [None]
  - RASH GENERALISED [None]
